FAERS Safety Report 8237292-7 (Version None)
Quarter: 2012Q1

REPORT INFORMATION
  Report Type: 
  Country: None (occurrence: None)
  Receive Date: 20120327
  Receipt Date: 20120319
  Transmission Date: 20120608
  Serious: Yes (Other)
  Sender: FDA-Public Use
  Company Number: JP-VERTEX PHARMACEUTICALS INC.-AE-2012-004090

PATIENT
  Age: 53 Year
  Sex: Male

DRUGS (9)
  1. RIBAVIRIN [Concomitant]
     Route: 048
     Dates: start: 20120111, end: 20120131
  2. SELTOUCH [Concomitant]
  3. RIBAVIRIN [Concomitant]
     Indication: HEPATITIS C
     Route: 048
     Dates: start: 20111130, end: 20120110
  4. MUCOSTA [Concomitant]
     Route: 048
  5. POSTERISAN [Concomitant]
  6. PEGINTERFERON ALFA-2A [Concomitant]
     Indication: HEPATITIS C
     Route: 051
     Dates: start: 20111130, end: 20120104
  7. PEGINTERFERON ALFA-2A [Concomitant]
     Route: 051
     Dates: start: 20120111
  8. RIBAVIRIN [Concomitant]
     Route: 048
     Dates: start: 20120102
  9. TELAVIC (TELAPREVIR) [Suspect]
     Indication: HEPATITIS C
     Route: 048
     Dates: start: 20111130

REACTIONS (1)
  - RETINOPATHY [None]
